FAERS Safety Report 8306124-0 (Version None)
Quarter: 2012Q2

REPORT INFORMATION
  Report Type: 
  Country: None (occurrence: None)
  Receive Date: 20120423
  Receipt Date: 20120413
  Transmission Date: 20120825
  Serious: Yes (Other)
  Sender: FDA-Public Use
  Company Number: US-ROCHE-790201

PATIENT
  Sex: Male
  Weight: 61.29 kg

DRUGS (2)
  1. ACCUTANE [Suspect]
     Indication: ACNE CYSTIC
     Route: 065
     Dates: start: 19970101, end: 19980101
  2. ACCUTANE [Suspect]

REACTIONS (7)
  - PROCTITIS [None]
  - IRRITABLE BOWEL SYNDROME [None]
  - CROHN'S DISEASE [None]
  - EMOTIONAL DISTRESS [None]
  - INFLAMMATORY BOWEL DISEASE [None]
  - COLITIS ULCERATIVE [None]
  - DEPRESSED MOOD [None]
